FAERS Safety Report 6769122-4 (Version None)
Quarter: 2010Q2

REPORT INFORMATION
  Report Type: 
  Country: None (occurrence: None)
  Receive Date: 20100615
  Receipt Date: 20100607
  Transmission Date: 20101027
  Serious: Yes (Death)
  Sender: FDA-Public Use
  Company Number: US-CELGENEUS-163-20785-10051266

PATIENT
  Sex: Female

DRUGS (1)
  1. THALOMID [Suspect]
     Indication: MULTIPLE MYELOMA
     Dosage: 50MG ALTERNATING 100MG
     Route: 048
     Dates: start: 20100405, end: 20100510

REACTIONS (2)
  - PNEUMONIA [None]
  - RESPIRATORY FAILURE [None]
